FAERS Safety Report 5524308-1 (Version None)
Quarter: 2007Q4

REPORT INFORMATION
  Report Type: 
  Country: None (occurrence: None)
  Receive Date: 20071121
  Receipt Date: 20071109
  Transmission Date: 20080405
  Serious: Yes (Other)
  Sender: FDA-Public Use
  Company Number: US-PFIZER INC-2007095450

PATIENT
  Sex: Female
  Weight: 122.9 kg

DRUGS (10)
  1. LYRICA [Suspect]
     Indication: FIBROMYALGIA
     Dates: start: 20070101, end: 20071106
  2. LYRICA [Suspect]
     Indication: NEURALGIA
  3. LEVOXYL [Concomitant]
  4. GLUCOVANCE [Concomitant]
  5. CRESTOR [Concomitant]
  6. ALDACTONE [Concomitant]
  7. TENORMIN [Concomitant]
  8. NAPROSYN [Concomitant]
  9. VALIUM [Concomitant]
  10. VICODIN [Concomitant]

REACTIONS (10)
  - BLADDER DISORDER [None]
  - CHAPPED LIPS [None]
  - CONSTIPATION [None]
  - DRUG DOSE OMISSION [None]
  - DRY MOUTH [None]
  - FLATULENCE [None]
  - HYPERSOMNIA [None]
  - RENAL PAIN [None]
  - SOMNOLENCE [None]
  - URINE OUTPUT DECREASED [None]
